FAERS Safety Report 6904585-2 (Version None)
Quarter: 2010Q3

REPORT INFORMATION
  Report Type: 
  Country: None (occurrence: None)
  Receive Date: 20100804
  Receipt Date: 20090616
  Transmission Date: 20110219
  Serious: No
  Sender: FDA-Public Use
  Company Number: US-PFIZER INC-2009197461

PATIENT
  Sex: Female
  Weight: 73.5 kg

DRUGS (4)
  1. LYRICA [Suspect]
     Indication: FIBROMYALGIA
     Dosage: 50 MG, 2X/DAY
     Dates: start: 20090407
  2. ATENOLOL [Concomitant]
     Dosage: UNK
  3. LISINOPRIL [Concomitant]
     Dosage: UNK
  4. EXCEDRIN ASPIRIN FREE [Concomitant]
     Indication: PAIN
     Dosage: UNK

REACTIONS (3)
  - DRUG INEFFECTIVE [None]
  - SLEEP DISORDER [None]
  - TENSION [None]
